FAERS Safety Report 7269943-8 (Version None)
Quarter: 2011Q1

REPORT INFORMATION
  Report Type: 
  Country: None (occurrence: None)
  Receive Date: 20110202
  Receipt Date: 20110201
  Transmission Date: 20110831
  Serious: Yes (Hospitalization)
  Sender: FDA-Public Use
  Company Number: IT-ABBOTT-11P-083-0699489-00

PATIENT
  Sex: Male

DRUGS (2)
  1. FULCROSUPRA [Suspect]
     Indication: HYPERLIPIDAEMIA
     Route: 048
     Dates: start: 20101130, end: 20101202
  2. FULCROSUPRA [Suspect]
     Indication: HYPERCHOLESTEROLAEMIA

REACTIONS (1)
  - RASH ERYTHEMATOUS [None]
